FAERS Safety Report 13041181 (Version 4)
Quarter: 2017Q1

REPORT INFORMATION
  Report Type: Spontaneous
  Country: US (occurrence: US)
  Receive Date: 20161219
  Receipt Date: 20170314
  Transmission Date: 20170428
  Serious: Yes (Other)
  Sender: FDA-Public Use
  Company Number: US-PFIZER INC-2016579571

PATIENT
  Age: 53 Year
  Sex: Female
  Weight: 38.55 kg

DRUGS (13)
  1. DIPHENHYDRAMINE. [Concomitant]
     Active Substance: DIPHENHYDRAMINE
     Indication: ORAL PAIN
     Dosage: 5 ML, AS NEEDED (5 ML MOUTWA~H (SWISH AND SPIT) 4 TIMES A DAY)
     Route: 048
  2. PROAIR HFA [Concomitant]
     Active Substance: ALBUTEROL SULFATE
     Dosage: 2 DF, AS NEEDED (90 MCG/ACTUATION)
     Route: 055
  3. PREDNISONE. [Concomitant]
     Active Substance: PREDNISONE
     Dosage: UNK (400 QDX3 DAYS THEN 3 PO QD X 3 DAYS THEN 2 PO QDX 3 DAYS THEN 1 PO QD X 3 DAYS)
     Route: 048
     Dates: end: 20161216
  4. CHANTIX [Suspect]
     Active Substance: VARENICLINE TARTRATE
     Indication: SMOKING CESSATION THERAPY
     Dosage: UNK
  5. TOPICORT [Concomitant]
     Active Substance: DESOXIMETASONE
     Dosage: UNK, 2X/DAY
     Route: 061
  6. ALPRAZOLAM. [Concomitant]
     Active Substance: ALPRAZOLAM
     Dosage: 1 MG, AS NEEDED (THREE TIMES DAILY)
  7. BOOST [Concomitant]
     Active Substance: DIETARY SUPPLEMENT
     Dosage: (TAKE BY ORAL ROUTE 5 DRINKS A DAY (8 FL OZ EACH)
     Route: 048
  8. XANAX [Concomitant]
     Active Substance: ALPRAZOLAM
     Indication: PANIC DISORDER
     Dosage: 1 MG, 3X/DAY
     Route: 048
  9. ALBUTEROL SULFATE. [Concomitant]
     Active Substance: ALBUTEROL SULFATE
     Dosage: (2.5 MG/3 ML (0.083 %) SOLUTION FOR NEBULIZATION) (INHALE 3 ML EVERY 4 H) AS NEEDED
     Route: 045
  10. FENTANYL. [Concomitant]
     Active Substance: FENTANYL
     Dosage: 12 UG, UNK (APPLY 1 PATCH EVERY 72 HOURS)
     Route: 062
  11. ZANTAC [Concomitant]
     Active Substance: RANITIDINE HYDROCHLORIDE
     Dosage: 75 MG, AS NEEDED (1/2 OF 150 MG) (TWICE A DAY)
     Route: 048
  12. ZYRTEC [Concomitant]
     Active Substance: CETIRIZINE HYDROCHLORIDE
     Dosage: UNK
  13. NICOTROL [Concomitant]
     Active Substance: NICOTINE
     Dosage: 10 MG, UNK (INHALE UPTO 7 TIMES A DAY)
     Route: 055

REACTIONS (7)
  - Oral disorder [Unknown]
  - Alopecia [Unknown]
  - Stevens-Johnson syndrome [Unknown]
  - Rash [Unknown]
  - Eye disorder [Unknown]
  - Drug hypersensitivity [Unknown]
  - Skin exfoliation [Unknown]
